FAERS Safety Report 5015918-9 (Version None)
Quarter: 2006Q2

REPORT INFORMATION
  Report Type: 
  Country: None (occurrence: None)
  Receive Date: 20060525
  Receipt Date: 20060504
  Transmission Date: 20061013
  Serious: Yes (Death, Hospitalization, Other)
  Sender: FDA-Public Use
  Company Number: BE200605001235

PATIENT
  Age: 32 Year
  Sex: Female

DRUGS (3)
  1. ZYPREXA [Suspect]
     Indication: BIPOLAR DISORDER
     Dosage: 10 MG, DAILY (1/D), ORAL
     Route: 048
     Dates: start: 19980101, end: 19980101
  2. LITHIUM (LITHIUM) [Concomitant]
  3. LORAZEPAM [Concomitant]

REACTIONS (10)
  - COMPLETED SUICIDE [None]
  - CONTUSION [None]
  - HAEMORRHAGE [None]
  - INCORRECT DOSE ADMINISTERED [None]
  - INTENTIONAL SELF-INJURY [None]
  - LACERATION [None]
  - MANIA [None]
  - NEUROLEPTIC MALIGNANT SYNDROME [None]
  - ROAD TRAFFIC ACCIDENT [None]
  - SEPSIS [None]
